FAERS Safety Report 20723027 (Version 6)
Quarter: 2022Q3

REPORT INFORMATION
  Report Type: Report from Study
  Country: US (occurrence: US)
  Receive Date: 20220419
  Receipt Date: 20220817
  Transmission Date: 20221026
  Serious: Yes (Life-Threatening)
  Sender: FDA-Public Use
  Company Number: US-NOVARTISTESTPH-NVSC2022US085621

PATIENT
  Sex: Male

DRUGS (2)
  1. ENTRESTO [Suspect]
     Active Substance: SACUBITRIL\VALSARTAN
     Indication: Product used for unknown indication
     Dosage: 1 DOSAGE FORM, BID (24/26 MG)
     Route: 065
  2. LOSARTAN [Suspect]
     Active Substance: LOSARTAN
     Indication: Product used for unknown indication
     Dosage: UNK, (FOR 2 MONTHS)
     Route: 065

REACTIONS (11)
  - Illness anxiety disorder [Unknown]
  - Pain in extremity [Unknown]
  - Arthralgia [Unknown]
  - Fear [Unknown]
  - Pain [Unknown]
  - Condition aggravated [Unknown]
  - Laziness [Unknown]
  - Somnolence [Unknown]
  - Asthenia [Unknown]
  - Hypotension [Unknown]
  - Product dose omission in error [Unknown]
